FAERS Safety Report 5398657-4 (Version None)
Quarter: 2007Q3

REPORT INFORMATION
  Report Type: 
  Country: None (occurrence: None)
  Receive Date: 20070726
  Receipt Date: 20070115
  Transmission Date: 20080115
  Serious: No
  Sender: FDA-Public Use
  Company Number: US-AMGEN-KDL207265

PATIENT
  Sex: Male
  Weight: 72.6 kg

DRUGS (5)
  1. PROCRIT [Suspect]
     Indication: ANAEMIA
     Dates: start: 20070111
  2. UNSPECIFIED ANTIHYPERTENSIVE AGENT [Suspect]
  3. INSULIN [Concomitant]
     Route: 058
  4. AVANDIA [Concomitant]
  5. UNSPECIFIED DIURETIC [Concomitant]

REACTIONS (1)
  - BLOOD GLUCOSE INCREASED [None]
